FAERS Safety Report 7731893-8 (Version None)
Quarter: 2011Q3

REPORT INFORMATION
  Report Type: 
  Country: None (occurrence: None)
  Receive Date: 20110906
  Receipt Date: 20110905
  Transmission Date: 20111222
  Serious: Yes (Death, Other)
  Sender: FDA-Public Use
  Company Number: VE-PFIZER INC-2011194831

PATIENT
  Age: 68 Year
  Sex: Male

DRUGS (4)
  1. OMEPRAZOLE [Concomitant]
     Indication: PROPHYLAXIS
     Route: 048
  2. ZOLOFT [Suspect]
     Indication: INSOMNIA
     Dosage: UNK, 1X/DAY
     Route: 048
     Dates: start: 20060101
  3. ATORVASTATIN [Concomitant]
     Route: 048
  4. INSULIN [Concomitant]
     Indication: DIABETES MELLITUS
     Dosage: UNK, 3X/DAY
     Route: 058

REACTIONS (3)
  - CARDIO-RESPIRATORY ARREST [None]
  - PULMONARY OEDEMA [None]
  - VASCULAR GRAFT [None]
